FAERS Safety Report 20762576 (Version 1)
Quarter: 2022Q2

REPORT INFORMATION
  Report Type: Spontaneous
  Country: US (occurrence: None)
  Receive Date: 20220427
  Receipt Date: 20220427
  Transmission Date: 20220721
  Serious: Yes (Hospitalization)
  Sender: FDA-Public Use
  Company Number: None

PATIENT
  Age: 17 Year
  Sex: Male
  Weight: 55 kg

DRUGS (1)
  1. CRIZANLIZUMAB-TMCA [Suspect]
     Active Substance: CRIZANLIZUMAB-TMCA
     Indication: Thalassaemia sickle cell
     Dosage: FREQUENCY : ONCE;?
     Route: 042
     Dates: start: 20220414, end: 20220414

REACTIONS (2)
  - Infusion related reaction [None]
  - Pain [None]

NARRATIVE: CASE EVENT DATE: 20220414
